FAERS Safety Report 9543897 (Version 1)
Quarter: 2013Q3

REPORT INFORMATION
  Report Type: Spontaneous
  Country: FR (occurrence: FR)
  Receive Date: 20130923
  Receipt Date: 20130923
  Transmission Date: 20140515
  Serious: Yes (Hospitalization)
  Sender: FDA-Public Use
  Company Number: FR-ROCHE-1278334

PATIENT
  Age: 29 Year
  Sex: Female

DRUGS (7)
  1. MABTHERA [Suspect]
     Indication: B-CELL LYMPHOMA
     Route: 042
     Dates: start: 20120111, end: 20130410
  2. MABTHERA [Suspect]
     Dosage: FIRST COURSE OF MABTHERA AS MAINTENANCE TREATMENT.
     Route: 042
     Dates: start: 20121004
  3. REVLIMID [Concomitant]
  4. CYCLOPHOSPHAMIDE [Concomitant]
  5. DOXORUBICINE [Concomitant]
  6. ONCOVIN [Concomitant]
  7. PREDNISONE [Concomitant]

REACTIONS (4)
  - Vertigo [Recovered/Resolved]
  - Asthenia [Recovered/Resolved]
  - Abdominal pain [Recovered/Resolved]
  - Diarrhoea [Recovered/Resolved]
